FAERS Safety Report 7850523-8 (Version None)
Quarter: 2011Q4

REPORT INFORMATION
  Report Type: 
  Country: None (occurrence: None)
  Receive Date: 20111026
  Receipt Date: 20111026
  Transmission Date: 20120403
  Serious: Yes (Disabling, Other)
  Sender: FDA-Public Use
  Company Number: None

PATIENT
  Sex: Female
  Weight: 47.627 kg

DRUGS (1)
  1. FOSAMAX [Suspect]
     Indication: OSTEOPOROSIS
     Dates: start: 20030606, end: 20110910

REACTIONS (3)
  - DYSPHAGIA [None]
  - GASTROINTESTINAL EROSION [None]
  - EROSIVE OESOPHAGITIS [None]
